FAERS Safety Report 7841749-8 (Version None)
Quarter: 2011Q4

REPORT INFORMATION
  Report Type: 
  Country: None (occurrence: None)
  Receive Date: 20111025
  Receipt Date: 20111015
  Transmission Date: 20120403
  Serious: Yes (Hospitalization, Other)
  Sender: FDA-Public Use
  Company Number: ES-JNJFOC-20111008531

PATIENT
  Age: 77 Year
  Sex: Male

DRUGS (6)
  1. GABAPENTIN [Suspect]
     Indication: PAIN
     Route: 065
  2. FENTANYL-100 [Suspect]
     Indication: PAIN
     Route: 062
  3. METAMIZOL [Suspect]
     Indication: PRODUCT USED FOR UNKNOWN INDICATION
     Route: 065
  4. FENTANYL-100 [Suspect]
     Route: 062
  5. DEXKETOPROFEN [Concomitant]
     Indication: PRODUCT USED FOR UNKNOWN INDICATION
     Route: 065
  6. FENTANYL-100 [Suspect]
     Route: 062
     Dates: start: 20090101

REACTIONS (4)
  - RESPIRATORY FAILURE [None]
  - RESPIRATORY TRACT INFECTION [None]
  - INADEQUATE ANALGESIA [None]
  - NEURALGIA [None]
